FAERS Safety Report 25620869 (Version 1)
Quarter: 2025Q3

REPORT INFORMATION
  Report Type: Report from Study
  Country: US (occurrence: US)
  Receive Date: 20250730
  Receipt Date: 20250730
  Transmission Date: 20251021
  Serious: Yes (Other)
  Sender: ESTEVE
  Company Number: US-Esteve Pharmaceuticals SA-2181492

PATIENT
  Sex: Female

DRUGS (16)
  1. LYSODREN [Suspect]
     Active Substance: MITOTANE
     Indication: Adrenal gland cancer
     Dates: start: 20250327
  2. LYSODREN [Suspect]
     Active Substance: MITOTANE
  3. ZYRTEC ALLGY [Concomitant]
  4. VITAMIN C [Concomitant]
     Active Substance: ASCORBIC ACID
  5. PROBIOTICS NOS [Concomitant]
     Active Substance: PROBIOTICS NOS
  6. PAPAYA/ENZYM CHW [Concomitant]
  7. ONDANSETRON [Concomitant]
     Active Substance: ONDANSETRON
  8. METOCLOPRAMIDE [Concomitant]
     Active Substance: METOCLOPRAMIDE
  9. MAGNESIUM [Concomitant]
     Active Substance: MAGNESIUM
  10. LORAZEPAM [Concomitant]
     Active Substance: LORAZEPAM
  11. LEVOFLOXACIN [Concomitant]
     Active Substance: LEVOFLOXACIN
  12. FLUTICASONE [Concomitant]
     Active Substance: FLUTICASONE
  13. CETIRIZINE [Concomitant]
     Active Substance: CETIRIZINE HYDROCHLORIDE
  14. AMLODIPINE [Concomitant]
     Active Substance: AMLODIPINE BESYLATE
  15. ALOE VERA LIQ JUICE [Concomitant]
  16. ACETAMINOPHEN [Concomitant]
     Active Substance: ACETAMINOPHEN

REACTIONS (5)
  - Neutropenia [Unknown]
  - Nausea [Unknown]
  - Depression [Unknown]
  - Decreased appetite [Unknown]
  - White blood cell count decreased [Unknown]
